FAERS Safety Report 20460195 (Version 2)
Quarter: 2022Q1

REPORT INFORMATION
  Report Type: Spontaneous
  Country: CL (occurrence: CL)
  Receive Date: 20220211
  Receipt Date: 20220328
  Transmission Date: 20220423
  Serious: Yes (Death, Other)
  Sender: FDA-Public Use
  Company Number: CL-ALXN-A202201299

PATIENT
  Age: 38 Year
  Sex: Male

DRUGS (5)
  1. SOLIRIS [Suspect]
     Active Substance: ECULIZUMAB
     Indication: Thrombotic microangiopathy
     Dosage: 1200 MG, ONLY ONE TIME
     Route: 042
     Dates: start: 2018
  2. SOLIRIS [Suspect]
     Active Substance: ECULIZUMAB
     Indication: Off label use
     Dosage: 900 MG, UNK
     Route: 042
     Dates: start: 2018
  3. IMURAN                             /00001501/ [Concomitant]
     Indication: Product used for unknown indication
     Dosage: 75 MG, Q12H
     Route: 065
     Dates: start: 20181015
  4. NEORAL [Concomitant]
     Active Substance: CYCLOSPORINE
     Indication: Product used for unknown indication
     Dosage: 80 MG, Q12H
     Route: 065
     Dates: start: 20181009
  5. PREDNISONE [Concomitant]
     Active Substance: PREDNISONE
     Indication: Product used for unknown indication
     Dosage: 5 MG, UNK
     Route: 065
     Dates: start: 20181006

REACTIONS (2)
  - Pancreatic carcinoma [Fatal]
  - Off label use [Unknown]
